FAERS Safety Report 10097772 (Version 1)
Quarter: 2014Q2

REPORT INFORMATION
  Report Type: Spontaneous
  Country: US (occurrence: US)
  Receive Date: 20140423
  Receipt Date: 20140423
  Transmission Date: 20141212
  Serious: No
  Sender: FDA-Public Use
  Company Number: US-BIOGENIDEC-2014BI035079

PATIENT
  Age: 45 Year
  Sex: Female
  Weight: 58 kg

DRUGS (6)
  1. TECFIDERA [Suspect]
     Indication: PRODUCT USED FOR UNKNOWN INDICATION
     Dates: start: 2014, end: 2014
  2. AMYPRA [Concomitant]
     Indication: GAIT DISTURBANCE
     Route: 048
     Dates: start: 2012
  3. CELLCEPT [Concomitant]
     Indication: PRODUCT USED FOR UNKNOWN INDICATION
     Dates: start: 2006, end: 2009
  4. CELLCEPT [Concomitant]
     Indication: PRODUCT USED FOR UNKNOWN INDICATION
     Dates: start: 2014
  5. BACLOFEN [Concomitant]
     Dates: start: 1996
  6. DETROL [Concomitant]
     Dates: start: 2012

REACTIONS (5)
  - Nasopharyngitis [Recovered/Resolved]
  - Dry eye [Recovered/Resolved]
  - Malaise [Recovered/Resolved]
  - Drug intolerance [Recovered/Resolved]
  - Nausea [Recovered/Resolved]
